FAERS Safety Report 5170346-0 (Version None)
Quarter: 2006Q4

REPORT INFORMATION
  Report Type: 
  Country: None (occurrence: None)
  Receive Date: 20061204
  Receipt Date: 20061120
  Transmission Date: 20070319
  Serious: Yes (Death, Other)
  Sender: FDA-Public Use
  Company Number: 2006US002597

PATIENT
  Sex: Male

DRUGS (3)
  1. AMBISOME [Suspect]
     Indication: DRUG USE FOR UNKNOWN INDICATION
     Dosage: 2 MG/KG, UID/QD
     Dates: start: 20061013
  2. VFEND [Concomitant]
  3. FUNGUARD (MICAFUNGIN SODIUM) [Concomitant]

REACTIONS (5)
  - CONVULSION [None]
  - DISEASE PROGRESSION [None]
  - FUNGAL INFECTION [None]
  - MYELODYSPLASTIC SYNDROME [None]
  - NERVOUS SYSTEM DISORDER [None]
